FAERS Safety Report 9135132 (Version 1)
Quarter: 2013Q1

REPORT INFORMATION
  Report Type: Spontaneous
  Country: IT (occurrence: FR)
  Receive Date: 20130304
  Receipt Date: 20130304
  Transmission Date: 20140127
  Serious: Yes (Hospitalization)
  Sender: FDA-Public Use
  Company Number: FR-FRI-1000041550

PATIENT
  Age: 82 None
  Sex: Male

DRUGS (8)
  1. NEBIVOLOL [Suspect]
     Dosage: 1.25 MG
     Route: 048
     Dates: end: 20120824
  2. LASILIX [Suspect]
     Dosage: 20 MG
     Route: 048
     Dates: end: 20120824
  3. COZAAR [Suspect]
     Dosage: 100 MG
     Route: 048
     Dates: end: 20120924
  4. RYTHMODAN [Suspect]
     Indication: ARRHYTHMIA SUPRAVENTRICULAR
     Dosage: 500 MG
     Route: 048
     Dates: end: 20120824
  5. SINTROM [Concomitant]
     Dates: end: 20120923
  6. BEFIZAL [Concomitant]
     Dosage: 400 MG
  7. ZYLORIC [Concomitant]
  8. TADENAN [Concomitant]
     Dosage: 100 MG

REACTIONS (3)
  - Renal failure [Recovered/Resolved]
  - Syncope [Recovered/Resolved]
  - Hypotension [Recovered/Resolved]
